FAERS Safety Report 9734749 (Version 2)
Quarter: 2013Q4

REPORT INFORMATION
  Report Type: Report from Study
  Country: FR (occurrence: FR)
  Receive Date: 20131206
  Receipt Date: 20131206
  Transmission Date: 20140711
  Serious: Yes (Hospitalization, Other)
  Sender: FDA-Public Use
  Company Number: FR-VERTEX PHARMACEUTICALS INC-AE-2011-000281

PATIENT
  Age: 62 Year
  Sex: Male
  Weight: 63 kg

DRUGS (8)
  1. VX-950 (TELAPREVIR) [Suspect]
     Indication: HEPATITIS C
     Dosage: 750 MG, TID
     Route: 048
     Dates: start: 20110414, end: 20110624
  2. COPEGUS [Suspect]
     Indication: HEPATITIS C
     Dates: start: 20110317
  3. PEGASYS [Suspect]
     Indication: HEPATITIS C
     Route: 058
     Dates: start: 20110317
  4. LEVOTHYROX [Concomitant]
     Indication: HYPOTHYROIDISM
     Dosage: 75 ?G, QD
  5. LEVOTHYROX [Concomitant]
     Indication: THYROID DISORDER
     Dosage: 50 ?G, UNK
  6. TRAMADOL [Concomitant]
     Indication: PAIN
     Dosage: 50 MG, QD
     Dates: start: 20110421
  7. DAFALGAN [Concomitant]
     Indication: INFLUENZA
     Dosage: 1 G, TID
     Dates: start: 20110317
  8. PROPRANOLOL [Concomitant]
     Indication: PROPHYLAXIS
     Dosage: 40 MG, QD

REACTIONS (9)
  - Leukopenia [Recovered/Resolved]
  - General physical health deterioration [Unknown]
  - Productive cough [Unknown]
  - Anaemia macrocytic [Recovered/Resolved]
  - Decreased appetite [Unknown]
  - Weight decreased [Unknown]
  - Asthenia [Unknown]
  - Anaemia [Recovered/Resolved]
  - Platelet count decreased [Unknown]
